FAERS Safety Report 5341637-5 (Version None)
Quarter: 2007Q2

REPORT INFORMATION
  Report Type: 
  Country: None (occurrence: None)
  Receive Date: 20070601
  Receipt Date: 20070523
  Transmission Date: 20071010
  Serious: Yes (Hospitalization)
  Sender: FDA-Public Use
  Company Number: DE-SOLVAY-00307000612

PATIENT
  Age: 22949 Day
  Sex: Male

DRUGS (10)
  1. INSULIN BASAL [Concomitant]
     Indication: DIABETES MELLITUS
     Dosage: DAILY DOSE:  UNKNOWN
     Route: 065
  2. TESTOGEL [Suspect]
     Indication: ANDROGEN DEFICIENCY
     Dosage: DAILY DOSE:  UNKNOWN
     Route: 061
     Dates: start: 20060126
  3. METOPROLOL SUCCINATE [Concomitant]
     Indication: HYPERTENSION
     Dosage: DAILY DOSE:  UNKNOWN
     Route: 065
  4. TESTOGEL VS PLACEBO [Suspect]
     Indication: ANDROGEN DEFICIENCY
     Dosage: DAILY DOSE:  UNKNOWN
     Route: 061
     Dates: start: 20050802, end: 20060126
  5. PENTAERITHRITYL TETRANITRATE [Concomitant]
     Indication: PROPHYLAXIS
     Dosage: DAILY DOSE:  UNKNOWN
     Route: 065
  6. HYDROCHLOROTHIAZIDE [Concomitant]
     Indication: HYPERTENSION
     Dosage: DAILY DOSE:  UNKNOWN
     Route: 065
  7. SIMVASTATIN [Concomitant]
     Indication: HYPERLIPIDAEMIA
     Dosage: DAILY DOSE:  UNKNOWN
     Route: 065
  8. BETAHISTINE [Concomitant]
     Indication: TINNITUS
     Dosage: DAILY DOSE:  UNKNOWN
     Route: 065
     Dates: start: 20051001
  9. ALPHA-LIPONSAURE [Concomitant]
     Indication: POLYNEUROPATHY
     Dosage: DAILY DOSE:  UNKNOWN
     Route: 065
     Dates: start: 20051001
  10. ACETYLSALICYLIC ACID SRT [Concomitant]
     Indication: PROPHYLAXIS
     Dosage: DAILY DOSE:  UNKNOWN
     Route: 065

REACTIONS (1)
  - CORONARY ARTERY DISEASE [None]
